FAERS Safety Report 9216625 (Version 1)
Quarter: 2013Q2

REPORT INFORMATION
  Report Type: Spontaneous
  Country: US (occurrence: US)
  Receive Date: 20130408
  Receipt Date: 20130408
  Transmission Date: 20140414
  Serious: No
  Sender: FDA-Public Use
  Company Number: US-PFIZER INC-2013108041

PATIENT
  Age: 60 Year
  Sex: Male
  Weight: 133.79 kg

DRUGS (2)
  1. LYRICA [Suspect]
     Indication: NEUROPATHY PERIPHERAL
     Dosage: 400 MG (BY TAKING 4 CAPSULES OF 100MG), UNK
  2. LYRICA [Suspect]
     Dosage: 500 MG, UNK

REACTIONS (3)
  - Weight increased [Unknown]
  - Somnolence [Unknown]
  - Drug effect decreased [Unknown]
